FAERS Safety Report 17122176 (Version 2)
Quarter: 2019Q4

REPORT INFORMATION
  Report Type: Spontaneous
  Country: AU (occurrence: AU)
  Receive Date: 20191206
  Receipt Date: 20191209
  Transmission Date: 20200122
  Serious: Yes (Other)
  Sender: FDA-Public Use
  Company Number: AU-ROCHE-2488813

PATIENT
  Sex: Female

DRUGS (1)
  1. MABTHERA [Suspect]
     Active Substance: RITUXIMAB
     Indication: CYTOMEGALOVIRUS COLITIS
     Route: 065

REACTIONS (3)
  - Cardio-respiratory arrest [Unknown]
  - Off label use [Unknown]
  - Intentional product use issue [Unknown]
